FAERS Safety Report 9274649 (Version 2)
Quarter: 2013Q3

REPORT INFORMATION
  Report Type: Spontaneous
  Country: US (occurrence: None)
  Receive Date: 20130429
  Receipt Date: 20130725
  Transmission Date: 20140515
  Serious: Yes (Hospitalization)
  Sender: FDA-Public Use
  Company Number: ACO_35612_2013

PATIENT
  Age: 52 Year
  Sex: Male

DRUGS (6)
  1. AMPYRA [Suspect]
     Indication: MULTIPLE SCLEROSIS
  2. AMPYRA [Suspect]
     Indication: GAIT DISTURBANCE
  3. BACLOFEN [Concomitant]
  4. OXYBUTYNIN CHLORIDE [Concomitant]
  5. STEROIDS [Concomitant]
  6. AVONEX [Concomitant]

REACTIONS (4)
  - Bacterial infection [None]
  - Wheelchair user [None]
  - Asthenia [None]
  - Decubitus ulcer [None]
